FAERS Safety Report 8779365 (Version 1)
Quarter: 2012Q4

REPORT INFORMATION
  Report Type: 
  Country: GB (occurrence: GB)
  Receive Date: 20120912
  Receipt Date: 20120912
  Transmission Date: 20130627
  Serious: Yes (Other)
  Sender: FDA-Public Use
  Company Number: GB-B.I. PHARMACEUTICALS,INC./RIDGEFIELD-2012-UK-01175UK

PATIENT
  Age: 64 Year
  Sex: Female

DRUGS (3)
  1. PRADAXA [Suspect]
     Indication: HIP ARTHROPLASTY
     Dosage: 220 mg
     Route: 048
     Dates: start: 20120816
  2. OXYCODONE [Concomitant]
     Indication: PAIN
     Dosage: 10 mg
     Route: 048
     Dates: start: 20120815, end: 20120815
  3. PARACETAMOL [Concomitant]
     Indication: PAIN
     Dosage: 1 g
     Route: 048
     Dates: start: 20120816

REACTIONS (4)
  - Headache [Not Recovered/Not Resolved]
  - Insomnia [Unknown]
  - Pruritus [Unknown]
  - Rash [Not Recovered/Not Resolved]
